FAERS Safety Report 11363253 (Version 2)
Quarter: 2015Q3

REPORT INFORMATION
  Report Type: Spontaneous
  Country: CN (occurrence: CN)
  Receive Date: 20150811
  Receipt Date: 20150817
  Transmission Date: 20151125
  Serious: Yes (Death)
  Sender: FDA-Public Use
  Company Number: CN-ROCHE-1619699

PATIENT
  Age: 74 Year
  Sex: Female

DRUGS (5)
  1. METHYLPREDNISOLONE SODIUM SUCCINATE. [Suspect]
     Active Substance: METHYLPREDNISOLONE SODIUM SUCCINATE
     Indication: EMPHYSEMA
     Route: 041
     Dates: start: 20150806, end: 20150809
  2. ROCEPHIN [Suspect]
     Active Substance: CEFTRIAXONE SODIUM
     Indication: BRONCHITIS CHRONIC
     Route: 041
     Dates: start: 20150809
  3. SODIUM CHLORIDE. [Concomitant]
     Active Substance: SODIUM CHLORIDE
     Route: 065
  4. ROCEPHIN [Suspect]
     Active Substance: CEFTRIAXONE SODIUM
     Indication: EMPHYSEMA
  5. MEZLOCILLIN SODIUM/SULBACTAM SODIUM [Suspect]
     Active Substance: MEZLOCILLIN SODIUM\SULBACTAM SODIUM
     Indication: EMPHYSEMA
     Route: 065
     Dates: start: 20150806, end: 20150809

REACTIONS (1)
  - Death [Fatal]

NARRATIVE: CASE EVENT DATE: 20150809
